FAERS Safety Report 6992086-5 (Version None)
Quarter: 2010Q3

REPORT INFORMATION
  Report Type: 
  Country: None (occurrence: None)
  Receive Date: 20100830
  Receipt Date: 20100628
  Transmission Date: 20110219
  Serious: No
  Sender: FDA-Public Use
  Company Number: 2010080732

PATIENT
  Age: 80 Year
  Sex: Female
  Weight: 86 kg

DRUGS (5)
  1. TOVIAZ [Suspect]
     Indication: HYPERTONIC BLADDER
     Dosage: 8 MG, DAILY, ORAL
     Route: 048
     Dates: start: 20100621
  2. TOPROL-XL [Concomitant]
  3. AROMASIN [Concomitant]
  4. NEURONTIN [Concomitant]
  5. NEXIUM [Concomitant]

REACTIONS (2)
  - DIARRHOEA [None]
  - MALAISE [None]
